FAERS Safety Report 22943269 (Version 2)
Quarter: 2024Q1

REPORT INFORMATION
  Report Type: Spontaneous
  Country: CN (occurrence: CN)
  Receive Date: 20230914
  Receipt Date: 20240222
  Transmission Date: 20240410
  Serious: Yes (Other)
  Sender: FDA-Public Use
  Company Number: CN-PFIZER INC-PV202300153057

PATIENT
  Age: 7 Year
  Sex: Female
  Weight: 27 kg

DRUGS (2)
  1. ZITHROMAX [Suspect]
     Active Substance: AZITHROMYCIN DIHYDRATE
     Indication: Appendicitis
     Dosage: 0.2 G, 1X/DAY
     Route: 048
     Dates: start: 20230810, end: 20230811
  2. AMOXICILLIN\CLAVULANATE POTASSIUM [Concomitant]
     Active Substance: AMOXICILLIN\CLAVULANATE POTASSIUM
     Indication: Appendicitis
     Dosage: 0.85 G, 3X/DAY
     Route: 041
     Dates: start: 20230804, end: 20230810

REACTIONS (3)
  - Hypersensitivity [Recovering/Resolving]
  - Rash erythematous [Recovering/Resolving]
  - Off label use [Unknown]

NARRATIVE: CASE EVENT DATE: 20230810
